FAERS Safety Report 17343954 (Version 4)
Quarter: 2020Q2

REPORT INFORMATION
  Report Type: Report from Study
  Country: CA (occurrence: CA)
  Receive Date: 20200129
  Receipt Date: 20200416
  Transmission Date: 20200713
  Serious: Yes (Other)
  Sender: FDA-Public Use
  Company Number: CA-JNJFOC-20191130599

PATIENT
  Sex: Female
  Weight: 86.18 kg

DRUGS (3)
  1. STELARA [Suspect]
     Active Substance: USTEKINUMAB
     Route: 058
     Dates: start: 20180630
  2. HYDROXYCHLOROQUINE [Concomitant]
     Active Substance: HYDROXYCHLOROQUINE
     Indication: PRODUCT USED FOR UNKNOWN INDICATION
  3. STELARA [Suspect]
     Active Substance: USTEKINUMAB
     Indication: CROHN^S DISEASE
     Route: 058
     Dates: start: 20180630

REACTIONS (6)
  - Oral herpes [Unknown]
  - Crohn^s disease [Unknown]
  - Pharyngitis [Recovered/Resolved]
  - General physical health deterioration [Unknown]
  - Rheumatic disorder [Unknown]
  - Drug ineffective [Unknown]
